FAERS Safety Report 12051101 (Version 1)
Quarter: 2016Q1

REPORT INFORMATION
  Report Type: Spontaneous
  Country: US (occurrence: None)
  Receive Date: 20160208
  Receipt Date: 20160208
  Transmission Date: 20160526
  Serious: Yes (Other)
  Sender: FDA-Public Use
  Company Number: None

PATIENT
  Age: 45 Year
  Sex: Female
  Weight: 78.02 kg

DRUGS (1)
  1. LEVOXYL [Suspect]
     Active Substance: LEVOTHYROXINE SODIUM
     Indication: THYROID DISORDER
     Dosage: 1
     Route: 048
     Dates: start: 20160203, end: 20160207

REACTIONS (5)
  - Salivary gland enlargement [None]
  - Ear pain [None]
  - Headache [None]
  - Neck pain [None]
  - Oropharyngeal pain [None]

NARRATIVE: CASE EVENT DATE: 20160207
